FAERS Safety Report 13682392 (Version 1)
Quarter: 2017Q2

REPORT INFORMATION
  Report Type: Spontaneous
  Country: US (occurrence: US)
  Receive Date: 20170623
  Receipt Date: 20170623
  Transmission Date: 20170830
  Serious: No
  Sender: FDA-Public Use
  Company Number: US-IPSEN BIOPHARMACEUTICALS, INC.-2016-06432

PATIENT
  Age: 50 Year
  Sex: Female
  Weight: 62 kg

DRUGS (10)
  1. DYSPORT [Suspect]
     Active Substance: ABOBOTULINUMTOXINA
     Indication: PRODUCT USE IN UNAPPROVED INDICATION
     Dosage: NOT REPORTED
     Route: 065
     Dates: start: 20160720, end: 20160720
  2. HORSETAIL [Concomitant]
     Active Substance: HERBALS
  3. VITAMIN D [Concomitant]
     Active Substance: CHOLECALCIFEROL
  4. DYSPORT [Suspect]
     Active Substance: ABOBOTULINUMTOXINA
     Indication: SKIN WRINKLING
     Dosage: NOT REPORTED
     Route: 065
  5. BIOTIN [Concomitant]
     Active Substance: BIOTIN
  6. GLUCOSAMINE [Concomitant]
     Active Substance: GLUCOSAMINE
  7. VITAMIN K [Concomitant]
     Active Substance: PHYTONADIONE
  8. TURMERIC [Concomitant]
     Active Substance: HERBALS\TURMERIC
  9. THYROID SUPPORT [Concomitant]
     Active Substance: HOMEOPATHICS
  10. PROBIOTIC [Concomitant]
     Active Substance: PROBIOTICS NOS

REACTIONS (5)
  - Hypoaesthesia [Not Recovered/Not Resolved]
  - Muscular weakness [Not Recovered/Not Resolved]
  - Speech disorder [Not Recovered/Not Resolved]
  - Dry mouth [Recovered/Resolved]
  - Dry mouth [Not Recovered/Not Resolved]

NARRATIVE: CASE EVENT DATE: 20160722
